FAERS Safety Report 19402116 (Version 1)
Quarter: 2021Q2

REPORT INFORMATION
  Report Type: Report from Study
  Country: US (occurrence: US)
  Receive Date: 20210611
  Receipt Date: 20210611
  Transmission Date: 20210717
  Serious: Yes (Hospitalization)
  Sender: FDA-Public Use
  Company Number: US-ACADIA PHARMACEUTICALS INC.-ACA-2021-PIM-002093

PATIENT
  Age: 75 Year
  Sex: Male

DRUGS (26)
  1. NUPLAZID [Suspect]
     Active Substance: PIMAVANSERIN TARTRATE
     Indication: PARKINSON^S DISEASE
     Dosage: 34 MILLIGRAM, QD
     Route: 048
     Dates: start: 20210327
  2. RIVASTIGMINE. [Suspect]
     Active Substance: RIVASTIGMINE
     Dosage: 4.6MG
  3. AZELASTINE. [Concomitant]
     Active Substance: AZELASTINE HYDROCHLORIDE
  4. CEQUA [Concomitant]
     Active Substance: CYCLOSPORINE
  5. CHLORHEXIDINE GLUCONATE. [Concomitant]
     Active Substance: CHLORHEXIDINE GLUCONATE
  6. KLONOPIN [Concomitant]
     Active Substance: CLONAZEPAM
  7. VITAMIN B12 [Concomitant]
     Active Substance: CYANOCOBALAMIN
  8. RIVASTIGMINE. [Suspect]
     Active Substance: RIVASTIGMINE
     Dosage: 935MG
  9. BISACODYL. [Concomitant]
     Active Substance: BISACODYL
  10. FLAXSEED [Concomitant]
     Active Substance: FLAX SEED
  11. MYRBETRIQ [Concomitant]
     Active Substance: MIRABEGRON
  12. TRAZODONE [Concomitant]
     Active Substance: TRAZODONE HYDROCHLORIDE
  13. PRAZOSIN. [Suspect]
     Active Substance: PRAZOSIN
     Dosage: UNK
  14. ASPIRIN [ACETYLSALICYLIC ACID] [Concomitant]
     Active Substance: ASPIRIN
  15. POLYETHYLENE [Concomitant]
     Active Substance: HIGH DENSITY POLYETHYLENE
  16. PILOCARPINE. [Concomitant]
     Active Substance: PILOCARPINE
  17. QUETIAPINE. [Concomitant]
     Active Substance: QUETIAPINE
  18. RYTARY [Concomitant]
     Active Substance: CARBIDOPA\LEVODOPA
  19. VITAMIN C [Concomitant]
     Active Substance: ASCORBIC ACID
  20. VITAMIN D3 [Concomitant]
     Active Substance: CHOLECALCIFEROL
  21. DULOXETINE. [Concomitant]
     Active Substance: DULOXETINE
  22. PRILOSEC [Concomitant]
     Active Substance: OMEPRAZOLE MAGNESIUM
  23. FLUOCINONIDE. [Concomitant]
     Active Substance: FLUOCINONIDE
  24. MIDODRINE [Concomitant]
     Active Substance: MIDODRINE
  25. KETOCONAZOLE. [Concomitant]
     Active Substance: KETOCONAZOLE
  26. LOTEMAX [Concomitant]
     Active Substance: LOTEPREDNOL ETABONATE

REACTIONS (3)
  - Anxiety [Not Recovered/Not Resolved]
  - Gastric disorder [Not Recovered/Not Resolved]
  - Fall [Not Recovered/Not Resolved]

NARRATIVE: CASE EVENT DATE: 20210408
